FAERS Safety Report 14394651 (Version 1)
Quarter: 2018Q1

REPORT INFORMATION
  Report Type: Spontaneous
  Country: GB (occurrence: GB)
  Receive Date: 20180116
  Receipt Date: 20180116
  Transmission Date: 20180509
  Serious: Yes (Hospitalization)
  Sender: FDA-Public Use
  Company Number: GB-PFIZER INC-2018013166

PATIENT
  Age: 26 Year
  Sex: Male
  Weight: 62 kg

DRUGS (28)
  1. TRANEXAMIC ACID. [Concomitant]
     Active Substance: TRANEXAMIC ACID
  2. POSACONAZOLE [Concomitant]
     Active Substance: POSACONAZOLE
  3. LIDOCAINE. [Concomitant]
     Active Substance: LIDOCAINE
  4. INOTUZUMAB OZOGAMICIN [Suspect]
     Active Substance: INOTUZUMAB OZOGAMICIN
     Dosage: 1.5 MG, UNK
     Route: 042
     Dates: start: 20170411, end: 20170411
  5. FORTISIP [Concomitant]
     Active Substance: CARBOHYDRATES\FATTY ACIDS\MINERALS\PROTEIN\VITAMINS
  6. CYCLIZINE [Concomitant]
     Active Substance: CYCLIZINE
  7. NYSTATIN. [Concomitant]
     Active Substance: NYSTATIN
  8. CALCIUM FOLINATE [Concomitant]
     Active Substance: LEUCOVORIN CALCIUM
  9. COTRIMOXAZOLE [Concomitant]
     Active Substance: SULFAMETHOXAZOLE\TRIMETHOPRIM
  10. RANITIDINE. [Concomitant]
     Active Substance: RANITIDINE
  11. PONATINIB [Concomitant]
     Active Substance: PONATINIB
  12. CIPROFLOXACIN. [Concomitant]
     Active Substance: CIPROFLOXACIN
  13. DIHYDROCODEINE [Concomitant]
     Active Substance: DIHYDROCODEINE
  14. PARACETAMOL [Concomitant]
     Active Substance: ACETAMINOPHEN
  15. PREDNISOLONE. [Concomitant]
     Active Substance: PREDNISOLONE
  16. ONDANSETRON [Concomitant]
     Active Substance: ONDANSETRON
  17. FILGRASTIM [Concomitant]
     Active Substance: FILGRASTIM
  18. EPADERM [Concomitant]
     Active Substance: MINERAL OIL\PETROLATUM\WAX, EMULSIFYING
  19. GABAPENTIN. [Concomitant]
     Active Substance: GABAPENTIN
  20. OMEPRAZOLE. [Concomitant]
     Active Substance: OMEPRAZOLE
  21. MORPHINE [Concomitant]
     Active Substance: MORPHINE
  22. ATOVAQUONE. [Concomitant]
     Active Substance: ATOVAQUONE
  23. ALLOPURINOL. [Concomitant]
     Active Substance: ALLOPURINOL
  24. VITAMIN B COMPLEX STRONG [Concomitant]
  25. VALACICLOVIR [Concomitant]
     Active Substance: VALACYCLOVIR HYDROCHLORIDE
  26. POTASSIUM CHLORIDE. [Concomitant]
     Active Substance: POTASSIUM CHLORIDE
  27. NABILONE [Concomitant]
     Active Substance: NABILONE
  28. THIAMINE. [Concomitant]
     Active Substance: THIAMINE

REACTIONS (3)
  - Pleocytosis [Unknown]
  - Herpes zoster meningoencephalitis [Recovered/Resolved]
  - Headache [Unknown]

NARRATIVE: CASE EVENT DATE: 20170823
